FAERS Safety Report 8002592-2 (Version None)
Quarter: 2011Q4

REPORT INFORMATION
  Report Type: 
  Country: None (occurrence: None)
  Receive Date: 20111222
  Receipt Date: 20110324
  Transmission Date: 20120403
  Serious: Yes (Other)
  Sender: FDA-Public Use
  Company Number: US-GLAXOSMITHKLINE-A0920591A

PATIENT
  Age: 65 Year
  Sex: Female
  Weight: 87.5 kg

DRUGS (1)
  1. VOTRIENT [Suspect]
     Indication: RENAL CANCER
     Dosage: 800MG PER DAY
     Route: 048
     Dates: start: 20100101

REACTIONS (4)
  - FATIGUE [None]
  - DEPRESSION [None]
  - HYPOTHYROIDISM [None]
  - DIARRHOEA [None]
